FAERS Safety Report 17246289 (Version 2)
Quarter: 2020Q1

REPORT INFORMATION
  Report Type: Report from Study
  Country: None (occurrence: AR)
  Receive Date: 20200108
  Receipt Date: 20200313
  Transmission Date: 20200409
  Serious: Yes (Other)
  Sender: FDA-Public Use
  Company Number: AR-ABBVIE-20K-007-3223512-00

PATIENT
  Age: 49 Year
  Sex: Female

DRUGS (1)
  1. HUMIRA [Suspect]
     Active Substance: ADALIMUMAB
     Indication: RHEUMATOID ARTHRITIS
     Route: 058
     Dates: start: 20160721

REACTIONS (4)
  - Pulmonary oedema [Unknown]
  - Ovarian cancer [Not Recovered/Not Resolved]
  - Pneumonia [Recovered/Resolved]
  - Arrhythmia [Recovering/Resolving]

NARRATIVE: CASE EVENT DATE: 20191222
